FAERS Safety Report 5428129-X (Version None)
Quarter: 2007Q3

REPORT INFORMATION
  Report Type: 
  Country: None (occurrence: None)
  Receive Date: 20070828
  Receipt Date: 20070802
  Transmission Date: 20080115
  Serious: No
  Sender: FDA-Public Use
  Company Number: US-BOEHRINGER INGELHEIM PHARMACEUTICALS, INC.-2007-BP-18498BP

PATIENT
  Sex: Female

DRUGS (5)
  1. ZANTAC 150 [Suspect]
     Indication: DYSPEPSIA
     Route: 048
     Dates: start: 20070501, end: 20070501
  2. BP MEDS [Concomitant]
  3. METFORMIN HCL [Concomitant]
  4. PRAVACHOL [Concomitant]
  5. PROCARDIA [Concomitant]

REACTIONS (1)
  - RASH GENERALISED [None]
